FAERS Safety Report 7358391-8 (Version None)
Quarter: 2011Q1

REPORT INFORMATION
  Report Type: 
  Country: None (occurrence: None)
  Receive Date: 20110317
  Receipt Date: 20110303
  Transmission Date: 20110831
  Serious: Yes (Other)
  Sender: FDA-Public Use
  Company Number: PHFR2011GB01710

PATIENT
  Sex: Male

DRUGS (3)
  1. VOLTAREN [Suspect]
     Indication: PAIN
     Dosage: UNK DF, UNK
     Route: 054
  2. VOLTAROL EMULGEL P [Suspect]
     Dosage: UNK DF, UNK
  3. VOLTAREN [Suspect]
     Dosage: UNK
     Route: 048

REACTIONS (7)
  - VISION BLURRED [None]
  - TRANSIENT ISCHAEMIC ATTACK [None]
  - LOSS OF CONSCIOUSNESS [None]
  - DIARRHOEA [None]
  - GASTRIC DISORDER [None]
  - BALANCE DISORDER [None]
  - SPEECH DISORDER [None]
